FAERS Safety Report 11131400 (Version 5)
Quarter: 2016Q2

REPORT INFORMATION
  Report Type: Report from Study
  Country: US (occurrence: US)
  Receive Date: 20150522
  Receipt Date: 20160425
  Transmission Date: 20160815
  Serious: Yes (Hospitalization)
  Sender: FDA-Public Use
  Company Number: US-SA-2015SA068684

PATIENT
  Age: 45 Year
  Sex: Female

DRUGS (1)
  1. LEMTRADA [Suspect]
     Active Substance: ALEMTUZUMAB
     Indication: MULTIPLE SCLEROSIS
     Route: 041
     Dates: start: 20150427, end: 20150501

REACTIONS (15)
  - Pain [Unknown]
  - Impaired healing [Unknown]
  - Malaise [Recovered/Resolved]
  - Gait disturbance [Unknown]
  - Abdominal pain upper [Unknown]
  - Unevaluable event [Unknown]
  - Gastritis [Unknown]
  - Mobility decreased [Recovered/Resolved]
  - Fatigue [Unknown]
  - Ovarian cyst [Unknown]
  - Feeling abnormal [Recovered/Resolved]
  - Rash [Recovering/Resolving]
  - Pain in extremity [Not Recovered/Not Resolved]
  - Alopecia [Unknown]
  - Nausea [Not Recovered/Not Resolved]

NARRATIVE: CASE EVENT DATE: 2015
